FAERS Safety Report 8583353-2 (Version None)
Quarter: 2012Q3

REPORT INFORMATION
  Report Type: 
  Country: None (occurrence: None)
  Receive Date: 20120809
  Receipt Date: 20120807
  Transmission Date: 20120928
  Serious: Yes (Other)
  Sender: FDA-Public Use
  Company Number: PHHY2012BR068776

PATIENT
  Age: 62 Year
  Sex: Male

DRUGS (2)
  1. DIOVAN [Suspect]
     Indication: HYPERTENSION
     Dosage: 1 DF, QD
  2. RASILEZ AMLO [Suspect]
     Indication: HYPERTENSION
     Dosage: 1 DF DAILY

REACTIONS (1)
  - DIABETES MELLITUS [None]
